FAERS Safety Report 5634940-2 (Version None)
Quarter: 2008Q1

REPORT INFORMATION
  Report Type: 
  Country: None (occurrence: None)
  Receive Date: 20080222
  Receipt Date: 20080129
  Transmission Date: 20080703
  Serious: Yes (Hospitalization, Other)
  Sender: FDA-Public Use
  Company Number: TR-ELI_LILLY_AND_COMPANY-TR200802004367

PATIENT
  Age: 1 Day

DRUGS (2)
  1. HUMULIN 70/30 [Suspect]
     Indication: GESTATIONAL DIABETES
     Route: 064
  2. HUMULIN 70/30 [Suspect]
     Route: 064

REACTIONS (3)
  - CEREBROVASCULAR DISORDER [None]
  - DRUG EXPOSURE DURING PREGNANCY [None]
  - PREMATURE BABY [None]
